FAERS Safety Report 18495364 (Version 3)
Quarter: 2020Q4

REPORT INFORMATION
  Report Type: Spontaneous
  Country: CA (occurrence: CA)
  Receive Date: 20201112
  Receipt Date: 20201119
  Transmission Date: 20210114
  Serious: Yes (Life-Threatening, Hospitalization, Other)
  Sender: FDA-Public Use
  Company Number: CA-MYLANLABS-2020M1093894

PATIENT
  Age: 21 Year
  Sex: Female
  Weight: 46.5 kg

DRUGS (9)
  1. VALPROIC ACID. [Suspect]
     Active Substance: VALPROIC ACID
     Indication: MYOCLONIC EPILEPSY
  2. TOPIRAMATE. [Concomitant]
     Active Substance: TOPIRAMATE
     Indication: MYOCLONIC EPILEPSY
     Dosage: UNK
     Route: 065
  3. LEVOCARNITINE. [Suspect]
     Active Substance: LEVOCARNITINE
     Indication: HYPERAMMONAEMIC ENCEPHALOPATHY
     Dosage: 100 MILLIGRAM PER KILOGRAM
     Route: 065
  4. LAMOTRIGINE. [Concomitant]
     Active Substance: LAMOTRIGINE
     Indication: MYOCLONIC EPILEPSY
     Dosage: UNK
     Route: 065
  5. LEVETIRACETAM. [Concomitant]
     Active Substance: LEVETIRACETAM
     Indication: MYOCLONIC EPILEPSY
     Dosage: UNK
     Route: 065
  6. VALPROIC ACID. [Suspect]
     Active Substance: VALPROIC ACID
     Indication: STATUS EPILEPTICUS
  7. CARGLUMIC ACID [Suspect]
     Active Substance: CARGLUMIC ACID
     Indication: HYPERAMMONAEMIC ENCEPHALOPATHY
     Dosage: 1 DOSAGE FORM, QD (29 TABLETS; TOTAL DOSE: 5800MG; 252 MG/KG/DAY   )
     Route: 065
  8. CLONAZEPAM. [Concomitant]
     Active Substance: CLONAZEPAM
     Indication: MYOCLONIC EPILEPSY
     Dosage: UNK
     Route: 065
  9. VALPROIC ACID. [Suspect]
     Active Substance: VALPROIC ACID
     Indication: SEIZURE
     Dosage: UNK
     Route: 065

REACTIONS (11)
  - Gait disturbance [Recovering/Resolving]
  - Abdominal discomfort [Unknown]
  - Vomiting [Unknown]
  - Anger [Recovering/Resolving]
  - Drug ineffective [Unknown]
  - Disorientation [Recovering/Resolving]
  - Tremor [Recovering/Resolving]
  - Hyperammonaemic encephalopathy [Not Recovered/Not Resolved]
  - Fatigue [Recovering/Resolving]
  - Rebound effect [Not Recovered/Not Resolved]
  - Off label use [Not Recovered/Not Resolved]
